FAERS Safety Report 14586847 (Version 1)
Quarter: 2018Q1

REPORT INFORMATION
  Report Type: Spontaneous
  Country: US (occurrence: US)
  Receive Date: 20180228
  Receipt Date: 20180228
  Transmission Date: 20180509
  Serious: Yes (Hospitalization)
  Sender: FDA-Public Use
  Company Number: None

PATIENT
  Age: 90 Year
  Sex: Male

DRUGS (18)
  1. DOXYCYCL [Concomitant]
  2. AMOXICILLIN. [Concomitant]
     Active Substance: AMOXICILLIN
  3. TAMSULOSIN [Concomitant]
     Active Substance: TAMSULOSIN
  4. OXYCODONE [Concomitant]
     Active Substance: OXYCODONE
  5. PREDNISONE. [Concomitant]
     Active Substance: PREDNISONE
  6. ZYTIGA [Suspect]
     Active Substance: ABIRATERONE ACETATE
     Indication: NEOPLASM MALIGNANT
     Dosage: ?          OTHER FREQUENCY:4 TABS DAILY;?
     Route: 048
     Dates: start: 20170125
  7. MECLIZINE [Concomitant]
     Active Substance: MECLIZINE HYDROCHLORIDE
  8. ASPIRIN. [Concomitant]
     Active Substance: ASPIRIN
  9. SIMVASTATIN. [Concomitant]
     Active Substance: SIMVASTATIN
  10. METOPROLOL TARTRATE. [Concomitant]
     Active Substance: METOPROLOL TARTRATE
  11. AMIODARONE [Concomitant]
     Active Substance: AMIODARONE
  12. PYRIDOSTIGM [Concomitant]
  13. MIDODRINE [Concomitant]
     Active Substance: MIDODRINE
  14. ZYTIGA [Concomitant]
     Active Substance: ABIRATERONE ACETATE
  15. FOLIC ACID. [Concomitant]
     Active Substance: FOLIC ACID
  16. CEPHALEXIN. [Concomitant]
     Active Substance: CEPHALEXIN
  17. FUROSEMIDE. [Concomitant]
     Active Substance: FUROSEMIDE
  18. WARFARIN [Concomitant]
     Active Substance: WARFARIN

REACTIONS (1)
  - Hot flush [None]

NARRATIVE: CASE EVENT DATE: 20180227
